FAERS Safety Report 23046493 (Version 1)
Quarter: 2023Q4

REPORT INFORMATION
  Report Type: Spontaneous
  Country: IN (occurrence: IN)
  Receive Date: 20231009
  Receipt Date: 20231009
  Transmission Date: 20240110
  Serious: Yes (Other)
  Sender: FDA-Public Use
  Company Number: IN-SUN PHARMACEUTICAL INDUSTRIES LTD-2023R1-410351

PATIENT
  Age: 60 Year
  Sex: Female

DRUGS (3)
  1. DOCETAXEL [Suspect]
     Active Substance: DOCETAXEL
     Indication: Breast cancer stage II
     Dosage: 110 MILLIGRAM/THRICE WEEKLY
     Route: 065
     Dates: start: 202109, end: 202110
  2. CARBOPLATIN [Concomitant]
     Active Substance: CARBOPLATIN
     Indication: Breast cancer stage II
     Dosage: (AUC 5)/THRICE WEEKLY
     Route: 065
  3. TRASTUZUMAB [Concomitant]
     Active Substance: TRASTUZUMAB
     Indication: Breast cancer stage II
     Dosage: 8 MG/KG LOAD FOLLOWED BY 6 MG/KG
     Route: 065

REACTIONS (1)
  - Interstitial lung disease [Recovered/Resolved]
